FAERS Safety Report 9397430 (Version 1)
Quarter: 2013Q3

REPORT INFORMATION
  Report Type: Spontaneous
  Country: US (occurrence: US)
  Receive Date: 20130712
  Receipt Date: 20130712
  Transmission Date: 20140515
  Serious: No
  Sender: FDA-Public Use
  Company Number: US-JNJFOC-20130705695

PATIENT
  Sex: Female
  Weight: 65.77 kg

DRUGS (5)
  1. DURAGESIC [Suspect]
     Indication: PAIN IN EXTREMITY
     Route: 062
     Dates: start: 2011
  2. DURAGESIC [Suspect]
     Indication: BACK PAIN
     Route: 062
     Dates: start: 2011
  3. FLUOXETINE [Concomitant]
     Indication: DEPRESSION
     Route: 048
     Dates: start: 2003
  4. BUPROPION [Concomitant]
     Indication: DEPRESSION
     Route: 048
     Dates: start: 2013
  5. METOPROLOL [Concomitant]
     Indication: CARDIAC DISORDER
     Route: 048
     Dates: start: 2004

REACTIONS (1)
  - Drug dose omission [Not Recovered/Not Resolved]
